FAERS Safety Report 5920545-2 (Version None)
Quarter: 2008Q4

REPORT INFORMATION
  Report Type: 
  Country: None (occurrence: None)
  Receive Date: 20081016
  Receipt Date: 20070305
  Transmission Date: 20090506
  Serious: Yes (Hospitalization)
  Sender: FDA-Public Use
  Company Number: US-WYE-H06385108

PATIENT
  Sex: Male

DRUGS (16)
  1. CORDARONE [Suspect]
     Indication: MYOCARDIAL INFARCTION
     Dosage: UNSPECIFIED DOSE, 1 MG/MIN
     Route: 042
     Dates: start: 20070118, end: 20070119
  2. CORDARONE [Suspect]
     Dosage: UNSPECIFIED DOSE, 1 MG/MIN
     Route: 042
     Dates: start: 20070123, end: 20070124
  3. CORDARONE [Suspect]
     Dosage: UNSPECIFIED DOSE, 1 MG/MIN
     Route: 042
     Dates: start: 20070127, end: 20070128
  4. SALBUTAMOL [Concomitant]
  5. DOPAMINE HCL [Concomitant]
  6. INSULIN [Concomitant]
  7. PROPOFOL [Concomitant]
  8. LOPRESSOR [Concomitant]
  9. CEFAZOLIN [Concomitant]
  10. COREG [Concomitant]
  11. EPINEPHRINE [Concomitant]
  12. PEPCID [Concomitant]
  13. LASIX [Concomitant]
  14. LISINOPRIL [Concomitant]
  15. LEVOPHED [Concomitant]
  16. PRIMACOR [Concomitant]

REACTIONS (1)
  - ACUTE HEPATIC FAILURE [None]
